FAERS Safety Report 5602952-0 (Version None)
Quarter: 2008Q1

REPORT INFORMATION
  Report Type: 
  Country: None (occurrence: None)
  Receive Date: 20080125
  Receipt Date: 20080117
  Transmission Date: 20080703
  Serious: Yes (Death, Other)
  Sender: FDA-Public Use
  Company Number: BE-ABBOTT-07P-013-0427653-00

PATIENT
  Sex: Male

DRUGS (15)
  1. KALETRA [Suspect]
     Indication: HIV INFECTION
     Dosage: 400MG, 2 IN 1 D
     Dates: start: 20070920, end: 20071203
  2. TENOFOVIR DISOPROXIL FUMARATE [Concomitant]
     Indication: HIV INFECTION
     Dates: start: 20070920
  3. LAMIVUDINE [Concomitant]
     Indication: HIV INFECTION
     Dates: start: 20070920
  4. BACTRIM [Concomitant]
     Indication: PROPHYLAXIS
  5. ACYCLOVIR [Concomitant]
     Indication: PROPHYLAXIS
  6. AZITHROMYCIN [Concomitant]
     Indication: DRUG USE FOR UNKNOWN INDICATION
  7. OMEPRAZOLE [Concomitant]
     Indication: DRUG USE FOR UNKNOWN INDICATION
  8. ALLOPURINOL [Concomitant]
     Indication: DRUG USE FOR UNKNOWN INDICATION
  9. TRAMADOL HCL [Concomitant]
     Indication: DRUG USE FOR UNKNOWN INDICATION
  10. IBUPROFEN [Concomitant]
     Indication: DRUG USE FOR UNKNOWN INDICATION
  11. PARACETAMOL [Concomitant]
     Indication: DRUG USE FOR UNKNOWN INDICATION
  12. ENOXAPARIN SODIUM [Concomitant]
     Indication: DRUG USE FOR UNKNOWN INDICATION
  13. RITUXIMAB [Concomitant]
     Indication: DRUG USE FOR UNKNOWN INDICATION
     Dates: start: 20071124
  14. CISPLATIN [Concomitant]
     Indication: DRUG USE FOR UNKNOWN INDICATION
     Dates: start: 20071124
  15. CYTARABINE [Concomitant]
     Indication: DRUG USE FOR UNKNOWN INDICATION
     Dates: start: 20071125

REACTIONS (7)
  - BACTERIA STOOL IDENTIFIED [None]
  - DIFFUSE LARGE B-CELL LYMPHOMA [None]
  - NECROTISING COLITIS [None]
  - POST PROCEDURAL HAEMORRHAGE [None]
  - RENAL IMPAIRMENT [None]
  - SEPTIC SHOCK [None]
  - THROMBOCYTOPENIA [None]
